FAERS Safety Report 13842678 (Version 1)
Quarter: 2017Q3

REPORT INFORMATION
  Report Type: Spontaneous
  Country: US (occurrence: US)
  Receive Date: 20170808
  Receipt Date: 20170808
  Transmission Date: 20171127
  Serious: Yes (Hospitalization)
  Sender: FDA-Public Use
  Company Number: US-LEXICON PHARMACEUTICALS, INC-17-1606-00631

PATIENT
  Age: 61 Year
  Sex: Female

DRUGS (1)
  1. TELOTRISTAT ETHYL [Suspect]
     Active Substance: TELOTRISTAT ETHYL
     Indication: CARCINOID SYNDROME
     Route: 048
     Dates: start: 20170719, end: 201707

REACTIONS (4)
  - Gait disturbance [Unknown]
  - Dizziness [Unknown]
  - Dehydration [Unknown]
  - Disorientation [Unknown]

NARRATIVE: CASE EVENT DATE: 201707
